FAERS Safety Report 9209899 (Version 2)
Quarter: 2013Q2

REPORT INFORMATION
  Report Type: Spontaneous
  Country: US (occurrence: US)
  Receive Date: 20130404
  Receipt Date: 20130410
  Transmission Date: 20140414
  Serious: No
  Sender: FDA-Public Use
  Company Number: US-009507513-1303USA014381

PATIENT
  Sex: Male
  Weight: 81.63 kg

DRUGS (1)
  1. LOTRIMIN AF LIQUID SPRAY [Suspect]
     Indication: TINEA INFECTION
     Dosage: UNK, BID
     Route: 061

REACTIONS (4)
  - Application site pain [Unknown]
  - Pain [Unknown]
  - Condition aggravated [Recovered/Resolved]
  - Skin burning sensation [Recovered/Resolved]
